FAERS Safety Report 6923548-4 (Version None)
Quarter: 2010Q3

REPORT INFORMATION
  Report Type: 
  Country: None (occurrence: None)
  Receive Date: 20100813
  Receipt Date: 20100806
  Transmission Date: 20110219
  Serious: Yes (Other)
  Sender: FDA-Public Use
  Company Number: A0874428A

PATIENT
  Age: 55 Year
  Sex: Female

DRUGS (11)
  1. VENTOLIN [Suspect]
     Indication: ASTHMA
     Dosage: 2PUFF SIX TIMES PER DAY
     Route: 055
     Dates: start: 20090101
  2. ADVAIR DISKUS 100/50 [Suspect]
     Indication: ASTHMA
     Dosage: 1PUFF TWICE PER DAY
     Route: 055
     Dates: start: 20100528
  3. KALETRA [Concomitant]
  4. TRUVADA [Concomitant]
  5. HYDROCHLOROTHIAZIDE [Concomitant]
  6. VITAMINS [Concomitant]
  7. CHLORPHENIRAMINE MALEATE-PHENYLEPHRINE HYDROCHLORIDE NYSCAP [Concomitant]
  8. VENLAFAXINE [Concomitant]
  9. MIRTAZAPINE [Concomitant]
  10. SEROQUEL [Concomitant]
  11. DEXTROMETHORPHAN [Concomitant]

REACTIONS (6)
  - ADVERSE EVENT [None]
  - ASTHMA [None]
  - COUGH [None]
  - DRUG ADMINISTRATION ERROR [None]
  - DRUG INEFFECTIVE [None]
  - HEADACHE [None]
